FAERS Safety Report 8888792 (Version 1)
Quarter: 2012Q4

REPORT INFORMATION
  Report Type: Report from Study
  Country: AU (occurrence: AU)
  Receive Date: 20121106
  Receipt Date: 20121106
  Transmission Date: 20130627
  Serious: Yes (Hospitalization)
  Sender: FDA-Public Use
  Company Number: AU-JNJFOC-20121102437

PATIENT
  Age: 65 Year
  Sex: Female

DRUGS (12)
  1. RIVAROXABAN [Suspect]
     Indication: ATRIAL FIBRILLATION
     Route: 048
     Dates: start: 20121015
  2. RIVAROXABAN [Suspect]
     Indication: CEREBROVASCULAR ACCIDENT PROPHYLAXIS
     Route: 048
     Dates: start: 20121015
  3. NEXIUM [Concomitant]
  4. DIGOXIN [Concomitant]
  5. GLUCOSAMINE [Concomitant]
  6. EFFEXOR [Concomitant]
  7. TAMBOCOR [Concomitant]
  8. FISH OIL [Concomitant]
  9. MAGNESIUM [Concomitant]
  10. WARFARIN [Concomitant]
  11. LIPITOR [Concomitant]
  12. TAMBOCOR [Concomitant]

REACTIONS (1)
  - Malaise [Unknown]
